FAERS Safety Report 6753189-3 (Version None)
Quarter: 2010Q2

REPORT INFORMATION
  Report Type: 
  Country: None (occurrence: None)
  Receive Date: 20100603
  Receipt Date: 20100531
  Transmission Date: 20101027
  Serious: Yes (Hospitalization)
  Sender: FDA-Public Use
  Company Number: DK-PFIZER INC-2010031385

PATIENT
  Age: 38 Year
  Sex: Female
  Weight: 63 kg

DRUGS (2)
  1. DEPO-MEDROL [Suspect]
     Indication: HYPERSENSITIVITY
     Dosage: 40 MG/ML, 2 ML
     Route: 030
     Dates: start: 20090401
  2. ACRIVASTINE [Concomitant]
     Dosage: UNK
     Route: 048

REACTIONS (1)
  - ANAPHYLACTIC REACTION [None]
